FAERS Safety Report 14173455 (Version 1)
Quarter: 2017Q4

REPORT INFORMATION
  Report Type: Spontaneous
  Country: US (occurrence: US)
  Receive Date: 20171109
  Receipt Date: 20171109
  Transmission Date: 20180321
  Serious: Yes (Life-Threatening, Other)
  Sender: FDA-Public Use
  Company Number: None

PATIENT
  Sex: Female
  Weight: 81 kg

DRUGS (4)
  1. WELLBUTRIN [Concomitant]
     Active Substance: BUPROPION HYDROCHLORIDE
  2. CARBAMAZEPINE. [Suspect]
     Active Substance: CARBAMAZEPINE
     Indication: BIPOLAR DISORDER
     Dosage: ?          QUANTITY:30 TABLET(S);?
     Route: 048
     Dates: end: 20171013
  3. XANAX [Concomitant]
     Active Substance: ALPRAZOLAM
  4. ESTRALYA BIRTH CONTROL [Concomitant]

REACTIONS (5)
  - Crying [None]
  - Intentional self-injury [None]
  - Suicidal ideation [None]
  - Depression [None]
  - Agitation [None]

NARRATIVE: CASE EVENT DATE: 20171104
